FAERS Safety Report 17621055 (Version 1)
Quarter: 2020Q2

REPORT INFORMATION
  Report Type: Spontaneous
  Country: US (occurrence: US)
  Receive Date: 20200403
  Receipt Date: 20200403
  Transmission Date: 20200713
  Serious: Yes (Other)
  Sender: FDA-Public Use
  Company Number: US-PFIZER INC-2020135618

PATIENT

DRUGS (1)
  1. MILRINONE [Suspect]
     Active Substance: MILRINONE
     Dosage: UNK

REACTIONS (1)
  - Vascular device infection [Unknown]
